FAERS Safety Report 10223116 (Version 3)
Quarter: 2014Q4

REPORT INFORMATION
  Report Type: Report from Study
  Country: AR (occurrence: AR)
  Receive Date: 20140607
  Receipt Date: 20141104
  Transmission Date: 20150528
  Serious: Yes (Other)
  Sender: FDA-Public Use
  Company Number: PHHY2014AR069729

PATIENT
  Age: 69 Year
  Sex: Female

DRUGS (3)
  1. LUCENTIS [Suspect]
     Active Substance: RANIBIZUMAB
     Indication: MACULOPATHY
     Dosage: 1 DF, UNK
     Route: 031
     Dates: start: 201311
  2. LOSTAPROLOL [Concomitant]
     Indication: HYPERTENSION
     Dosage: 2.5 MG, QD (DAILY)
     Route: 065
  3. DIOVAN [Suspect]
     Active Substance: VALSARTAN
     Indication: HYPERTENSION
     Dosage: 1 DF, QD
     Route: 048
     Dates: start: 201301

REACTIONS (3)
  - Visual acuity reduced [Recovering/Resolving]
  - Headache [Recovered/Resolved]
  - Maculopathy [Recovering/Resolving]

NARRATIVE: CASE EVENT DATE: 2014
